FAERS Safety Report 4279920-7 (Version None)
Quarter: 2004Q1

REPORT INFORMATION
  Report Type: 
  Country: None (occurrence: None)
  Receive Date: 20040122
  Receipt Date: 20040109
  Transmission Date: 20041129
  Serious: Yes (Hospitalization)
  Sender: FDA-Public Use
  Company Number: 105325

PATIENT
  Age: 53 Year
  Sex: Female

DRUGS (7)
  1. HERCEPTIN [Suspect]
     Indication: BREAST CANCER
     Dosage: SEE IMAGE
     Dates: start: 20021203, end: 20021203
  2. HERCEPTIN [Suspect]
     Indication: BREAST CANCER
     Dosage: SEE IMAGE
     Dates: start: 20021204, end: 20021204
  3. HERCEPTIN [Suspect]
     Indication: BREAST CANCER
     Dosage: SEE IMAGE
     Dates: start: 20021204, end: 20021205
  4. DOCETAXEL (DOCETAXEL) SOLUTION [Suspect]
     Indication: BREAST CANCER
     Dosage: 130 MG,
     Dates: start: 20021204
  5. CARBOPLATIN [Suspect]
     Indication: BREAST CANCER
     Dosage: 810 MG, Q3W, INTRAVENOUS
     Route: 042
     Dates: start: 20021204
  6. DEXAMETHASONE [Suspect]
     Dosage: 8 MG, SINGLE, ORAL
     Route: 048
     Dates: start: 20021203, end: 20021203
  7. GRANISETRON (GRANISETRON HYDROCHLORIDE) [Concomitant]

REACTIONS (7)
  - ACIDOSIS [None]
  - FATIGUE [None]
  - FEBRILE NEUTROPENIA [None]
  - HYPERGLYCAEMIA [None]
  - NAUSEA [None]
  - PAIN [None]
  - VOMITING [None]
